FAERS Safety Report 4453492-6 (Version None)
Quarter: 2004Q3

REPORT INFORMATION
  Report Type: 
  Country: None (occurrence: None)
  Receive Date: 20040901
  Receipt Date: 20040518
  Transmission Date: 20050211
  Serious: Yes (Hospitalization)
  Sender: FDA-Public Use
  Company Number: US077351

PATIENT
  Age: 73 Year
  Sex: Female
  Weight: 69.5 kg

DRUGS (3)
  1. ENBREL [Suspect]
     Indication: RHEUMATOID ARTHRITIS
     Dosage: 25 MG, 2 IN 1 WEEK
     Dates: start: 19991001, end: 20040401
  2. ESTRADIOL [Concomitant]
  3. CALCIUM CARBONATE [Concomitant]

REACTIONS (1)
  - PULMONARY TUBERCULOSIS [None]
